FAERS Safety Report 6067053-9 (Version None)
Quarter: 2009Q1

REPORT INFORMATION
  Report Type: 
  Country: None (occurrence: None)
  Receive Date: 20090203
  Receipt Date: 20090121
  Transmission Date: 20090719
  Serious: Yes (Hospitalization)
  Sender: FDA-Public Use
  Company Number: 230723K09USA

PATIENT
  Age: 36 Year
  Sex: Female

DRUGS (5)
  1. REBIF [Suspect]
     Indication: MULTIPLE SCLEROSIS
     Dosage: 44 MCG SUBCUTANEOUS; 8.8 MCG
     Route: 058
     Dates: start: 20070101, end: 20081219
  2. REBIF [Suspect]
     Indication: MULTIPLE SCLEROSIS
     Dosage: 44 MCG SUBCUTANEOUS; 8.8 MCG
     Route: 058
     Dates: start: 20090101
  3. REBIF [Suspect]
     Indication: MULTIPLE SCLEROSIS
     Dosage: 44 MCG SUBCUTANEOUS; 8.8 MCG
     Route: 058
     Dates: start: 20090101
  4. PROVIGIL [Concomitant]
  5. BIRTH CONTROL (ORAL CONTRACEPTIVE NOS) [Concomitant]

REACTIONS (8)
  - BENIGN UTERINE NEOPLASM [None]
  - CERVIX DISORDER [None]
  - FATIGUE [None]
  - MALAISE [None]
  - MENORRHAGIA [None]
  - MUSCULOSKELETAL PAIN [None]
  - PRECANCEROUS CELLS PRESENT [None]
  - ROAD TRAFFIC ACCIDENT [None]
